FAERS Safety Report 5139969-9 (Version None)
Quarter: 2006Q4

REPORT INFORMATION
  Report Type: 
  Country: None (occurrence: None)
  Receive Date: 20061031
  Receipt Date: 20061020
  Transmission Date: 20070319
  Serious: Yes (Hospitalization)
  Sender: FDA-Public Use
  Company Number: US-BRACCO-BDI-008765

PATIENT
  Age: 66 Year
  Sex: Female

DRUGS (2)
  1. ISOVUE-300 [Suspect]
     Indication: SPINAL NERVE STIMULATOR IMPLANTATION
     Route: 050
     Dates: start: 20061019, end: 20061019
  2. ISOVUE-300 [Suspect]
     Indication: PAIN MANAGEMENT
     Route: 050
     Dates: start: 20061019, end: 20061019

REACTIONS (3)
  - DRUG ADMINISTRATION ERROR [None]
  - MUSCULOSKELETAL PAIN [None]
  - TACHYCARDIA [None]
